FAERS Safety Report 7008137-8 (Version None)
Quarter: 2010Q3

REPORT INFORMATION
  Report Type: 
  Country: None (occurrence: None)
  Receive Date: 20100922
  Receipt Date: 20100913
  Transmission Date: 20110219
  Serious: Yes (Other)
  Sender: FDA-Public Use
  Company Number: FR-AMGEN-QUU439182

PATIENT
  Sex: Male

DRUGS (1)
  1. ENBREL [Suspect]
     Indication: ANKYLOSING SPONDYLITIS
     Dosage: UNKNOWN
     Route: 058
     Dates: start: 20100501

REACTIONS (7)
  - CEREBROVASCULAR ACCIDENT [None]
  - ERYTHEMA [None]
  - FORMICATION [None]
  - HYPOAESTHESIA [None]
  - MONOPLEGIA [None]
  - NERVOUS SYSTEM DISORDER [None]
  - SKIN PLAQUE [None]
